FAERS Safety Report 24709135 (Version 2)
Quarter: 2025Q1

REPORT INFORMATION
  Report Type: Report from Study
  Country: US (occurrence: US)
  Receive Date: 20241208
  Receipt Date: 20250118
  Transmission Date: 20250408
  Serious: Yes (Other)
  Sender: NOVARTIS
  Company Number: US-002147023-NVSC2024US224628

PATIENT
  Sex: Female

DRUGS (3)
  1. KISQALI [Suspect]
     Active Substance: RIBOCICLIB
     Indication: Breast cancer metastatic
     Dosage: 600 MG, QD
     Route: 048
     Dates: start: 20241003, end: 20241016
  2. KISQALI [Suspect]
     Active Substance: RIBOCICLIB
     Indication: Hormone receptor positive HER2 negative breast cancer
     Dosage: 600 MG, QD
     Route: 048
     Dates: start: 20241020
  3. KISQALI [Suspect]
     Active Substance: RIBOCICLIB
     Indication: Breast cancer

REACTIONS (8)
  - Dyspnoea [Recovering/Resolving]
  - Pain in extremity [Recovering/Resolving]
  - Superficial vein thrombosis [Recovering/Resolving]
  - Phlebitis [Recovering/Resolving]
  - Electrocardiogram QT prolonged [Recovering/Resolving]
  - Dizziness [Unknown]
  - Varicose vein [Unknown]
  - Illness [Unknown]
